FAERS Safety Report 6219019-3 (Version None)
Quarter: 2009Q2

REPORT INFORMATION
  Report Type: 
  Country: None (occurrence: None)
  Receive Date: 20090608
  Receipt Date: 20090527
  Transmission Date: 20091009
  Serious: Yes (Other)
  Sender: FDA-Public Use
  Company Number: AU-PFIZER INC-2009218513

PATIENT
  Age: 45 Year

DRUGS (2)
  1. CHAMPIX [Suspect]
     Indication: SMOKING CESSATION THERAPY
     Dosage: 1 MG, 2X/DAY
     Route: 048
     Dates: start: 20090413, end: 20090427
  2. ACETAMINOPHEN W/ CODEINE [Concomitant]
     Indication: BACK DISORDER

REACTIONS (2)
  - LOWER RESPIRATORY TRACT INFECTION [None]
  - MOOD ALTERED [None]
